FAERS Safety Report 25895195 (Version 3)
Quarter: 2025Q4

REPORT INFORMATION
  Report Type: Report from Study
  Country: US (occurrence: None)
  Receive Date: 20251008
  Receipt Date: 20251112
  Transmission Date: 20260117
  Serious: Yes (Other)
  Sender: UCB
  Company Number: US-UCBSA-2025012633

PATIENT
  Age: 52 Year
  Weight: 80.7 kg

DRUGS (4)
  1. FENFLURAMINE [Suspect]
     Active Substance: FENFLURAMINE
     Indication: Lennox-Gastaut syndrome
     Dosage: 9.2 MILLIGRAM, ONCE DAILY (QD)
  2. FENFLURAMINE [Suspect]
     Active Substance: FENFLURAMINE
     Dosage: 20.24 MILLIGRAM/DAY
  3. FENFLURAMINE [Suspect]
     Active Substance: FENFLURAMINE
     Dosage: 4.6 MILLILITER, 2X/DAY (BID)
  4. FENFLURAMINE [Suspect]
     Active Substance: FENFLURAMINE
     Dosage: 4.6 MILLILITER, 2X/DAY (BID)

REACTIONS (8)
  - Aortic valve incompetence [Unknown]
  - Infection [Not Recovered/Not Resolved]
  - Animal bite [Not Recovered/Not Resolved]
  - Left ventricular hypertrophy [Unknown]
  - Aortic valve sclerosis [Unknown]
  - Left atrial dilatation [Unknown]
  - Aortic valve thickening [Unknown]
  - Weight decreased [Not Recovered/Not Resolved]
